FAERS Safety Report 9814403 (Version 1)
Quarter: 2014Q1

REPORT INFORMATION
  Report Type: Spontaneous
  Country: US (occurrence: US)
  Receive Date: 20140113
  Receipt Date: 20140113
  Transmission Date: 20141002
  Serious: Yes (Other)
  Sender: FDA-Public Use
  Company Number: US-ENDO PHARMACEUTICALS INC.-HCDA20130034

PATIENT
  Age: 71 Year
  Sex: Female

DRUGS (4)
  1. HYDROCODONE/ACETAMINOPHEN 5MG/500MG [Suspect]
     Indication: ARTHRITIS
     Dosage: 15MG/1500MG
     Route: 048
  2. HYDROCODONE/ACETAMINOPHEN 5MG/500MG [Suspect]
     Indication: BACK PAIN
  3. ALPRAZOLAM IR TABLETS 0.5MG [Suspect]
     Indication: PRODUCT USED FOR UNKNOWN INDICATION
     Route: 048
  4. KEFLEX [Concomitant]
     Indication: PHARYNGITIS
     Dosage: UNKNOWN
     Route: 065
     Dates: start: 20130114

REACTIONS (2)
  - Drug abuse [Unknown]
  - Drug screen negative [Unknown]
